FAERS Safety Report 25539504 (Version 2)
Quarter: 2025Q3

REPORT INFORMATION
  Report Type: Spontaneous
  Country: US (occurrence: US)
  Receive Date: 20250710
  Receipt Date: 20250801
  Transmission Date: 20251020
  Serious: No
  Sender: PFIZER
  Company Number: US-PFIZER INC-202500139353

PATIENT
  Age: 26 Year
  Sex: Female

DRUGS (1)
  1. VELSIPITY [Suspect]
     Active Substance: ETRASIMOD ARGININE

REACTIONS (4)
  - Condition aggravated [Unknown]
  - Faecal calprotectin increased [Unknown]
  - Muscle spasms [Unknown]
  - Adnexa uteri pain [Unknown]
